FAERS Safety Report 9629523 (Version 10)
Quarter: 2014Q4

REPORT INFORMATION
  Report Type: Report from Study
  Country: JP (occurrence: JP)
  Receive Date: 20131017
  Receipt Date: 20141024
  Transmission Date: 20150529
  Serious: Yes (Death, Life-Threatening, Hospitalization, Disabling)
  Sender: FDA-Public Use
  Company Number: JP-PFIZER INC-2013292736

PATIENT
  Age: 61 Year
  Sex: Male
  Weight: 83 kg

DRUGS (51)
  1. XALKORI [Suspect]
     Active Substance: CRIZOTINIB
     Dosage: 250 MG, 2X/DAY
     Route: 048
     Dates: start: 20130613, end: 20131029
  2. CAMPTO [Suspect]
     Active Substance: IRINOTECAN
     Dosage: 190 MG/DAY, CYCLIC
     Route: 041
     Dates: start: 20130816, end: 20130816
  3. ALOSITOL [Concomitant]
     Active Substance: ALLOPURINOL
     Dosage: 100 MG, 1X/DAY
     Route: 048
  4. MAGMITT [Concomitant]
     Active Substance: MAGNESIUM OXIDE
     Dosage: 330 MG, 2X/DAY
     Route: 048
     Dates: start: 20130412
  5. ALOXI [Concomitant]
     Active Substance: PALONOSETRON HYDROCHLORIDE
     Dosage: 0.75 MG, SINGLE
     Route: 042
     Dates: start: 20130704, end: 20130704
  6. ALOXI [Concomitant]
     Active Substance: PALONOSETRON HYDROCHLORIDE
     Dosage: 0.75 MG, SINGLE
     Route: 042
     Dates: start: 20130829, end: 20130829
  7. EMEND [Concomitant]
     Active Substance: APREPITANT
     Dosage: 80 MG, 1X/DAY
     Route: 048
     Dates: start: 20130719, end: 20130720
  8. EMEND [Concomitant]
     Active Substance: APREPITANT
     Dosage: 80 MG, 1X/DAY
     Route: 048
     Dates: start: 20130830, end: 20130831
  9. CAMPTO [Suspect]
     Active Substance: IRINOTECAN
     Dosage: 190 MG/DAY, CYCLIC
     Route: 041
     Dates: start: 20130801, end: 20130801
  10. MUCOSTA [Concomitant]
     Active Substance: REBAMIPIDE
     Dosage: 100 MG, 3X/DAY
     Route: 048
     Dates: start: 20130613
  11. ALOXI [Concomitant]
     Active Substance: PALONOSETRON HYDROCHLORIDE
     Dosage: 0.75 MG, SINGLE
     Route: 042
     Dates: start: 20131024, end: 20131024
  12. EMEND [Concomitant]
     Active Substance: APREPITANT
     Dosage: 125 MG, 1X/DAY
     Route: 048
     Dates: start: 20130704, end: 20130704
  13. EMEND [Concomitant]
     Active Substance: APREPITANT
     Dosage: 80 MG, 1X/DAY
     Route: 048
     Dates: start: 20130705, end: 20130706
  14. EMEND [Concomitant]
     Active Substance: APREPITANT
     Dosage: 125 MG, 1X/DAY
     Route: 048
     Dates: start: 20130718, end: 20130718
  15. CAMPTO [Suspect]
     Active Substance: IRINOTECAN
     Dosage: 190 MG/DAY CYCLIC
     Route: 041
     Dates: start: 20130829, end: 20130829
  16. GEMZAR [Suspect]
     Active Substance: GEMCITABINE HYDROCHLORIDE
     Indication: NON-SMALL CELL LUNG CANCER
     Dosage: 1900 MG/DAY, CYCLIC
     Route: 041
     Dates: start: 20130704, end: 20130704
  17. GEMZAR [Suspect]
     Active Substance: GEMCITABINE HYDROCHLORIDE
     Dosage: 1900 MG/DAY, CYCLIC
     Route: 041
     Dates: start: 20130801, end: 20130801
  18. ALOXI [Concomitant]
     Active Substance: PALONOSETRON HYDROCHLORIDE
     Dosage: 0.75 MG, SINGLE
     Route: 042
     Dates: start: 20130801, end: 20130801
  19. DECADRON [Concomitant]
     Active Substance: DEXAMETHASONE
     Dosage: 6.6 MG, SINGLE
     Route: 042
     Dates: start: 20130718, end: 20130718
  20. CAMPTO [Suspect]
     Active Substance: IRINOTECAN
     Indication: NON-SMALL CELL LUNG CANCER
     Dosage: 190 MG/DAY, CYCLIC
     Route: 041
     Dates: start: 20130704, end: 20130704
  21. GEMZAR [Suspect]
     Active Substance: GEMCITABINE HYDROCHLORIDE
     Dosage: 1900 MG/DAY, CYCLIC
     Route: 041
     Dates: start: 20130913, end: 20130913
  22. NIVADIL [Concomitant]
     Active Substance: NILVADIPINE
     Dosage: 2 MG, 2X/DAY
     Route: 048
  23. CODEINE PHOSPHATE [Concomitant]
     Active Substance: CODEINE PHOSPHATE
     Dosage: 20 MG, 3X/DAY
     Route: 048
  24. EMEND [Concomitant]
     Active Substance: APREPITANT
     Dosage: 80 MG, 1X/DAY
     Route: 048
     Dates: start: 20130817, end: 20130818
  25. EMEND [Concomitant]
     Active Substance: APREPITANT
     Dosage: 80 MG, 1X/DAY
     Route: 048
     Dates: start: 20130914, end: 20130915
  26. GEMZAR [Suspect]
     Active Substance: GEMCITABINE HYDROCHLORIDE
     Dosage: 1900 MG/DAY, CYCLIC
     Route: 041
     Dates: start: 20130829, end: 20130829
  27. ALOXI [Concomitant]
     Active Substance: PALONOSETRON HYDROCHLORIDE
     Dosage: 0.75 MG, SINGLE
     Route: 042
     Dates: start: 20130718, end: 20130718
  28. ALOXI [Concomitant]
     Active Substance: PALONOSETRON HYDROCHLORIDE
     Dosage: 0.75 MG, SINGLE
     Route: 042
     Dates: start: 20130816, end: 20130816
  29. DECADRON [Concomitant]
     Active Substance: DEXAMETHASONE
     Dosage: 6.6 MG, SINGLE
     Route: 042
     Dates: start: 20130816, end: 20130816
  30. EMEND [Concomitant]
     Active Substance: APREPITANT
     Dosage: 125 MG, 1X/DAY
     Route: 048
     Dates: start: 20130913, end: 20130913
  31. CAMPTO [Suspect]
     Active Substance: IRINOTECAN
     Dosage: 190 MG/DAY, CYCLIC
     Route: 041
     Dates: start: 20130718, end: 20130718
  32. CAMPTO [Suspect]
     Active Substance: IRINOTECAN
     Dosage: 190 MG/DAY, CYCLIC
     Route: 041
     Dates: start: 20130913, end: 20130913
  33. DECADRON [Concomitant]
     Active Substance: DEXAMETHASONE
     Dosage: 6.6 MG, SINGLE
     Route: 042
     Dates: start: 20130801, end: 20130801
  34. DECADRON [Concomitant]
     Active Substance: DEXAMETHASONE
     Dosage: 6.6 MG, SINGLE
     Route: 042
     Dates: start: 20130913, end: 20130913
  35. EMEND [Concomitant]
     Active Substance: APREPITANT
     Dosage: 80 MG, 1X/DAY
     Route: 048
     Dates: start: 20130802, end: 20130803
  36. GEMZAR [Suspect]
     Active Substance: GEMCITABINE HYDROCHLORIDE
     Dosage: 1900 MG/DAY, CYCLIC
     Route: 041
     Dates: start: 20130718, end: 20130718
  37. PARAPLATIN [Suspect]
     Active Substance: CARBOPLATIN
     Indication: NON-SMALL CELL LUNG CANCER
     Dosage: 350 MG, 1X/DAY
     Route: 041
     Dates: start: 20131024, end: 20131024
  38. ALOXI [Concomitant]
     Active Substance: PALONOSETRON HYDROCHLORIDE
     Dosage: 0.75 MG, SINGLE
     Route: 042
     Dates: start: 20130913, end: 20130913
  39. EMEND [Concomitant]
     Active Substance: APREPITANT
     Dosage: 125 MG, 1X/DAY
     Route: 048
     Dates: start: 20130801, end: 20130801
  40. EMEND [Concomitant]
     Active Substance: APREPITANT
     Dosage: 125 MG, 1X/DAY
     Route: 048
     Dates: start: 20130816, end: 20130816
  41. EMEND [Concomitant]
     Active Substance: APREPITANT
     Dosage: 125 MG, 1X/DAY
     Route: 048
     Dates: start: 20130829, end: 20130829
  42. XALKORI [Suspect]
     Active Substance: CRIZOTINIB
     Indication: NON-SMALL CELL LUNG CANCER
     Dosage: 250 MG, 2X/DAY
     Route: 048
     Dates: start: 20130117, end: 20130408
  43. GEMZAR [Suspect]
     Active Substance: GEMCITABINE HYDROCHLORIDE
     Dosage: 1900 MG/DAY, CYCLIC
     Route: 041
     Dates: start: 20130816, end: 20130816
  44. ABRAXANE [Suspect]
     Active Substance: PACLITAXEL
     Indication: NON-SMALL CELL LUNG CANCER
     Dosage: 193 MG, 1X/DAY
     Route: 041
     Dates: start: 20131024, end: 20131024
  45. NU LOTAN [Concomitant]
     Active Substance: LOSARTAN
     Dosage: 50 MG, 1X/DAY
     Route: 048
  46. NEXIUM [Concomitant]
     Active Substance: ESOMEPRAZOLE MAGNESIUM
     Dosage: 20 MG, 1X/DAY
     Route: 048
     Dates: start: 20130412
  47. DECADRON [Concomitant]
     Active Substance: DEXAMETHASONE
     Dosage: 6.6 MG, SINGLE
     Route: 042
     Dates: start: 20130704, end: 20130704
  48. DECADRON [Concomitant]
     Active Substance: DEXAMETHASONE
     Dosage: 6.6 MG, SINGLE
     Route: 042
     Dates: start: 20130829, end: 20130829
  49. DECADRON [Concomitant]
     Active Substance: DEXAMETHASONE
     Dosage: 6.6 MG, SINGLE
     Route: 042
     Dates: start: 20131024, end: 20131024
  50. EMEND [Concomitant]
     Active Substance: APREPITANT
     Dosage: 125 MG, 1X/DAY
     Route: 048
     Dates: start: 20131024, end: 20131024
  51. EMEND [Concomitant]
     Active Substance: APREPITANT
     Dosage: 80 MG, 1X/DAY
     Route: 048
     Dates: start: 20131025, end: 20131026

REACTIONS (4)
  - Interstitial lung disease [Fatal]
  - Neutropenia [Not Recovered/Not Resolved]
  - Interstitial lung disease [Recovered/Resolved with Sequelae]
  - Pyrexia [Recovering/Resolving]

NARRATIVE: CASE EVENT DATE: 20130919
